FAERS Safety Report 12597192 (Version 1)
Quarter: 2016Q3

REPORT INFORMATION
  Report Type: Spontaneous
  Country: US (occurrence: US)
  Receive Date: 20160727
  Receipt Date: 20160727
  Transmission Date: 20161109
  Serious: No
  Sender: FDA-Public Use
  Company Number: US-BAYER-2016-143483

PATIENT
  Age: 83 Year
  Sex: Female
  Weight: 68.27 kg

DRUGS (5)
  1. ALEVE [Suspect]
     Active Substance: NAPROXEN SODIUM
     Indication: SCIATICA
     Dosage: 2 DF, BID
     Route: 048
     Dates: start: 20160720, end: 20160720
  2. CALTRATE [CALCIUM CARBONATE,COLECALCIFEROL] [Concomitant]
  3. FISH OIL [Concomitant]
     Active Substance: FISH OIL
  4. EYE DROPS [Concomitant]
     Active Substance: TETRAHYDROZOLINE HYDROCHLORIDE
  5. OMEGA [CARBINOXAMINE MALEATE] [Concomitant]

REACTIONS (2)
  - Product use issue [None]
  - Drug ineffective [None]

NARRATIVE: CASE EVENT DATE: 20160720
